FAERS Safety Report 8354482-3 (Version None)
Quarter: 2012Q2

REPORT INFORMATION
  Report Type: 
  Country: None (occurrence: None)
  Receive Date: 20120511
  Receipt Date: 20120430
  Transmission Date: 20120825
  Serious: Yes (Other)
  Sender: FDA-Public Use
  Company Number: US-ELI_LILLY_AND_COMPANY-US201205000103

PATIENT
  Sex: Female

DRUGS (2)
  1. HUMALOG [Suspect]
     Dosage: UNK, UNKNOWN
  2. VICTOZA [Concomitant]

REACTIONS (3)
  - BLOOD GLUCOSE DECREASED [None]
  - TREMOR [None]
  - DEPRESSED LEVEL OF CONSCIOUSNESS [None]
